FAERS Safety Report 8396106-5 (Version None)
Quarter: 2012Q2

REPORT INFORMATION
  Report Type: 
  Country: None (occurrence: None)
  Receive Date: 20120530
  Receipt Date: 20120529
  Transmission Date: 20120825
  Serious: Yes (Hospitalization)
  Sender: FDA-Public Use
  Company Number: JP-PFIZER INC-2012112353

PATIENT
  Age: 85 Year
  Sex: Male
  Weight: 62.9 kg

DRUGS (5)
  1. LANDEL [Concomitant]
     Indication: HYPERTENSION
     Dosage: 60 MG, DAILY
     Route: 048
     Dates: start: 20101029, end: 20111231
  2. OLMESARTAN MEDOXOMIL [Suspect]
     Indication: HYPERTENSION
     Dosage: 20 MG, 1X/DAY
     Route: 048
     Dates: start: 20100624, end: 20111231
  3. TENORMIN [Suspect]
     Indication: HYPERTENSION
     Dosage: 50 MG, 1X/DAY
     Route: 048
     Dates: start: 20100624, end: 20111231
  4. LASIX [Concomitant]
     Route: 048
  5. EPLERENONE [Suspect]
     Indication: HYPERTENSION
     Dosage: 50 MG, 1X/DAY
     Route: 048
     Dates: start: 20110924, end: 20111231

REACTIONS (3)
  - HYPERKALAEMIA [None]
  - SICK SINUS SYNDROME [None]
  - SHOCK [None]
